FAERS Safety Report 25622814 (Version 1)
Quarter: 2025Q3

REPORT INFORMATION
  Report Type: Spontaneous
  Country: US (occurrence: None)
  Receive Date: 20250730
  Receipt Date: 20250730
  Transmission Date: 20251021
  Serious: Yes (Death, Hospitalization)
  Sender: FDA-CTU
  Company Number: None

PATIENT
  Age: 16 Year
  Sex: Female
  Weight: 36.5 kg

DRUGS (1)
  1. BLEOMYCIN [Suspect]
     Active Substance: BLEOMYCIN SULFATE
     Dates: end: 20250531

REACTIONS (17)
  - Lung opacity [None]
  - Vomiting [None]
  - Pneumonitis [None]
  - Pulmonary septal thickening [None]
  - Bronchiectasis [None]
  - Fluid retention [None]
  - Thrombocytopenia [None]
  - Cardiac failure [None]
  - Hypoxia [None]
  - Hypercapnia [None]
  - Dialysis [None]
  - Unresponsive to stimuli [None]
  - Cerebral haemorrhage [None]
  - Pneumothorax [None]
  - Hypotension [None]
  - Cardiac arrest [None]
  - Multiple organ dysfunction syndrome [None]

NARRATIVE: CASE EVENT DATE: 20250629
